FAERS Safety Report 4313904-5 (Version None)
Quarter: 2004Q1

REPORT INFORMATION
  Report Type: 
  Country: None (occurrence: None)
  Receive Date: 20040305
  Receipt Date: 20040218
  Transmission Date: 20041129
  Serious: Yes (Other)
  Sender: FDA-Public Use
  Company Number: 2003012658

PATIENT
  Age: 34 Year
  Sex: Female
  Weight: 75 kg

DRUGS (2)
  1. ZITHROMAX [Suspect]
     Indication: PHARYNGOLARYNGEAL PAIN
     Dosage: 250 MG (DAILY); ORAL
     Route: 048
  2. INSULIN LISPRO (INSULIN LISPRO) [Concomitant]

REACTIONS (1)
  - HYPOGLYCAEMIA [None]
